FAERS Safety Report 5224302-4 (Version None)
Quarter: 2007Q1

REPORT INFORMATION
  Report Type: 
  Country: None (occurrence: None)
  Receive Date: 20070130
  Receipt Date: 20070124
  Transmission Date: 20070707
  Serious: Yes (Death)
  Sender: FDA-Public Use
  Company Number: CA-ELI_LILLY_AND_COMPANY-CA200701005286

PATIENT
  Age: 40 Year
  Sex: Male

DRUGS (1)
  1. XIGRIS [Suspect]

REACTIONS (1)
  - SEPTIC SHOCK [None]
